FAERS Safety Report 17043556 (Version 2)
Quarter: 2019Q4

REPORT INFORMATION
  Report Type: Spontaneous
  Country: ES (occurrence: ES)
  Receive Date: 20191118
  Receipt Date: 20191122
  Transmission Date: 20200122
  Serious: Yes (Other)
  Sender: FDA-Public Use
  Company Number: ES-MYLANLABS-2019M1109999

PATIENT
  Age: 40 Year
  Sex: Female

DRUGS (2)
  1. PALBOCICLIB [Suspect]
     Active Substance: PALBOCICLIB
     Indication: BREAST CANCER
     Dosage: UNK
     Dates: start: 2018
  2. FULVESTRANT. [Suspect]
     Active Substance: FULVESTRANT
     Indication: BREAST CANCER
     Dosage: UNK
     Dates: start: 2018

REACTIONS (8)
  - Urinary tract infection [Unknown]
  - Joint stiffness [Unknown]
  - Alopecia [Unknown]
  - Hot flush [Unknown]
  - Neoplasm progression [Unknown]
  - Bone pain [Unknown]
  - Leukopenia [Unknown]
  - Fatigue [Unknown]
